FAERS Safety Report 17336869 (Version 8)
Quarter: 2020Q4

REPORT INFORMATION
  Report Type: Report from Study
  Country: US (occurrence: US)
  Receive Date: 20200128
  Receipt Date: 20201130
  Transmission Date: 20210113
  Serious: Yes (Other)
  Sender: FDA-Public Use
  Company Number: US-INCYTE CORPORATION-2020IN000261

PATIENT

DRUGS (6)
  1. JAKAFI [Suspect]
     Active Substance: RUXOLITINIB
     Dosage: 10 MILLIGRAM, BID
     Route: 065
  2. JAKAFI [Suspect]
     Active Substance: RUXOLITINIB
     Dosage: 10 MILLIGRAM, BID
     Route: 048
     Dates: start: 20191224
  3. JAKAFI [Suspect]
     Active Substance: RUXOLITINIB
     Dosage: UNK
     Route: 065
     Dates: start: 20191225, end: 202003
  4. HYDROXYUREA. [Concomitant]
     Active Substance: HYDROXYUREA
     Indication: PRODUCT USED FOR UNKNOWN INDICATION
     Dosage: 800 MILLIGRAM
     Route: 065
  5. JAKAFI [Suspect]
     Active Substance: RUXOLITINIB
     Indication: POLYCYTHAEMIA VERA
     Dosage: 10 MILLIGRAM, BID
     Route: 048
     Dates: start: 20191225
  6. JAKAFI [Suspect]
     Active Substance: RUXOLITINIB
     Dosage: 10 MILLIGRAM, BID
     Route: 065
     Dates: end: 20200303

REACTIONS (19)
  - Liver function test increased [Unknown]
  - Alanine aminotransferase increased [Unknown]
  - Aspartate aminotransferase increased [Unknown]
  - Skin cancer [Unknown]
  - Blood alkaline phosphatase increased [Unknown]
  - Skin papilloma [Unknown]
  - Lipids increased [Unknown]
  - Fatigue [Unknown]
  - White blood cell count decreased [Recovering/Resolving]
  - Headache [Unknown]
  - Therapeutic product effect incomplete [Unknown]
  - Haemoglobin decreased [Unknown]
  - Blood cholesterol increased [Unknown]
  - Platelet count increased [Not Recovered/Not Resolved]
  - Drug ineffective [Unknown]
  - Low density lipoprotein increased [Unknown]
  - Haematocrit decreased [Unknown]
  - High density lipoprotein decreased [Unknown]
  - Red blood cell count decreased [Unknown]
